FAERS Safety Report 21387615 (Version 2)
Quarter: 2023Q1

REPORT INFORMATION
  Report Type: Spontaneous
  Country: FR (occurrence: FR)
  Receive Date: 20220928
  Receipt Date: 20230116
  Transmission Date: 20230418
  Serious: Yes (Death, Life-Threatening, Other)
  Sender: FDA-Public Use
  Company Number: FR-NAPPMUNDI-GBR-2022-0101770

PATIENT
  Sex: Female

DRUGS (2)
  1. OXYCONTIN [Suspect]
     Active Substance: OXYCODONE HYDROCHLORIDE
     Indication: Pain
     Dosage: 15 MILLIGRAM, BID (ONE TABLET MORNING AND EVENING)
     Route: 065
  2. OXYCONTIN [Suspect]
     Active Substance: OXYCODONE HYDROCHLORIDE
     Dosage: 10 MILLIGRAM, BID (5 AM AND 7.30 AM)
     Route: 065
     Dates: start: 20220418

REACTIONS (5)
  - Myocardial infarction [Fatal]
  - Vomiting [Unknown]
  - Medication error [Unknown]
  - Drug ineffective [Unknown]
  - Product dispensing error [Unknown]

NARRATIVE: CASE EVENT DATE: 20220418
